FAERS Safety Report 25935423 (Version 1)
Quarter: 2025Q4

REPORT INFORMATION
  Report Type: Spontaneous
  Country: EU (occurrence: EU)
  Receive Date: 20251017
  Receipt Date: 20251017
  Transmission Date: 20260119
  Serious: Yes (Hospitalization, Other)
  Sender: RANBAXY
  Company Number: EU-SUN PHARMACEUTICAL INDUSTRIES INC-2025R1-532222

PATIENT
  Age: 13 Year
  Sex: Female

DRUGS (1)
  1. CLOZAPINE [Suspect]
     Active Substance: CLOZAPINE
     Indication: Antipsychotic therapy
     Dosage: 100 MILLIGRAM
     Route: 065

REACTIONS (4)
  - Cardiotoxicity [Recovering/Resolving]
  - Tachycardia [Recovering/Resolving]
  - Mitral valve incompetence [Recovering/Resolving]
  - Pericardial effusion [Recovering/Resolving]
